FAERS Safety Report 13171258 (Version 3)
Quarter: 2017Q1

REPORT INFORMATION
  Report Type: Spontaneous
  Country: LT (occurrence: LT)
  Receive Date: 20170201
  Receipt Date: 20170315
  Transmission Date: 20170428
  Serious: Yes (Hospitalization, Other)
  Sender: FDA-Public Use
  Company Number: PHHY2017LT011755

PATIENT
  Age: 44 Year
  Sex: Female
  Weight: 120 kg

DRUGS (12)
  1. SIGNIFOR [Suspect]
     Active Substance: PASIREOTIDE
     Dosage: 0.6 M, BID
     Route: 065
     Dates: start: 20160914
  2. METFORMINE [Concomitant]
     Active Substance: METFORMIN HYDROCHLORIDE
     Indication: DIABETES MELLITUS
     Dosage: 850 MG, TID
     Route: 065
  3. PERINDOPRIL [Concomitant]
     Active Substance: PERINDOPRIL
     Indication: HYPERTENSION
     Dosage: 5 MG, QD
     Route: 065
     Dates: end: 20160819
  4. SIGNIFOR [Suspect]
     Active Substance: PASIREOTIDE
     Indication: PITUITARY-DEPENDENT CUSHING^S SYNDROME
     Dosage: 0.6 MG, BID
     Route: 058
     Dates: start: 20151116
  5. INSULIN GLULISINE [Concomitant]
     Active Substance: INSULIN GLULISINE
     Indication: DIABETES MELLITUS
     Dosage: 12 OT, TID
     Route: 065
  6. KETOPROFENUM [Concomitant]
     Indication: HEADACHE
     Dosage: 2 ML, UNK
     Route: 030
     Dates: start: 20160819, end: 20160821
  7. HYDROCORTISONUM [Concomitant]
     Active Substance: HYDROCORTISONE
     Indication: GLUCOCORTICOID DEFICIENCY
     Dosage: 100 MG, UNK
     Route: 042
  8. SIGNIFOR [Suspect]
     Active Substance: PASIREOTIDE
     Dosage: 0.6 MG, BID
     Route: 065
     Dates: start: 20160516
  9. SIGNIFOR [Suspect]
     Active Substance: PASIREOTIDE
     Dosage: 0.3 MG, BID
     Route: 065
     Dates: start: 20151214, end: 20160516
  10. MANNITOL SOLUTION [Concomitant]
     Indication: PRODUCT USED FOR UNKNOWN INDICATION
     Dosage: 250 MG, QD
     Route: 065
     Dates: start: 20160819, end: 20160821
  11. INSULIN DEGLUDEC [Concomitant]
     Active Substance: INSULIN DEGLUDEC
     Indication: DIABETES MELLITUS
     Dosage: 40VV, QD
     Route: 065
  12. NEBIVOLOL. [Concomitant]
     Active Substance: NEBIVOLOL
     Indication: HYPERTENSION
     Dosage: 5 MG, QD
     Route: 065
     Dates: end: 20160819

REACTIONS (11)
  - Eyelid ptosis [Recovering/Resolving]
  - Neoplasm [Unknown]
  - Hypotension [Unknown]
  - Pituitary haemorrhage [Recovered/Resolved]
  - Headache [Unknown]
  - Vision blurred [Unknown]
  - Glucocorticoid deficiency [Unknown]
  - Visual pathway disorder [Unknown]
  - Nausea [Unknown]
  - Vomiting [Unknown]
  - Blood corticotrophin decreased [Unknown]

NARRATIVE: CASE EVENT DATE: 20160819
